FAERS Safety Report 7067560-6 (Version None)
Quarter: 2010Q4

REPORT INFORMATION
  Report Type: 
  Country: None (occurrence: None)
  Receive Date: 20101028
  Receipt Date: 20101019
  Transmission Date: 20110411
  Serious: Yes (Hospitalization)
  Sender: FDA-Public Use
  Company Number: JP-ASTRAZENECA-2010SE50034

PATIENT
  Age: 78 Year
  Sex: Female

DRUGS (2)
  1. ARIMIDEX [Suspect]
     Indication: BREAST CANCER
     Route: 048
     Dates: start: 20081209, end: 20101013
  2. AROMASIN [Suspect]
     Indication: BREAST CANCER
     Route: 048
     Dates: start: 20050704, end: 20081207

REACTIONS (1)
  - NEPHROGENIC ANAEMIA [None]
